FAERS Safety Report 7303583-7 (Version None)
Quarter: 2011Q1

REPORT INFORMATION
  Report Type: 
  Country: None (occurrence: None)
  Receive Date: 20110221
  Receipt Date: 20110217
  Transmission Date: 20110831
  Serious: Yes (Death)
  Sender: FDA-Public Use
  Company Number: PHHY2011US13078

PATIENT
  Sex: Male

DRUGS (2)
  1. NEORAL [Suspect]
     Indication: LIVER TRANSPLANT
  2. NEORAL [Suspect]
     Indication: RENAL TRANSPLANT
     Dosage: 100 MG, BID
     Route: 048
     Dates: start: 20090720

REACTIONS (1)
  - DEATH [None]
